FAERS Safety Report 14282657 (Version 6)
Quarter: 2019Q2

REPORT INFORMATION
  Report Type: Spontaneous
  Country: US (occurrence: US)
  Receive Date: 20171213
  Receipt Date: 20190507
  Transmission Date: 20190711
  Serious: Yes (Hospitalization, Other)
  Sender: FDA-Public Use
  Company Number: US-SA-2017SA246195

PATIENT
  Age: 53 Year
  Sex: Female
  Weight: 60.6 kg

DRUGS (7)
  1. DEXAMETHASONE. [Concomitant]
     Active Substance: DEXAMETHASONE
     Dosage: 40 MG,UNK
     Route: 048
  2. HYDROCHLOROTHIAZIDE. [Concomitant]
     Active Substance: HYDROCHLOROTHIAZIDE
     Dosage: 12.5 MG,QD
     Route: 048
  3. LEMTRADA [Suspect]
     Active Substance: ALEMTUZUMAB
     Indication: MULTIPLE SCLEROSIS
     Dosage: UNK UNK,QD
     Route: 041
     Dates: start: 20160711, end: 20160715
  4. OMEGA-3 TRIGLYCERIDES [Concomitant]
     Dosage: UNK UNK,UNK
     Route: 065
  5. GABAPENTIN. [Concomitant]
     Active Substance: GABAPENTIN
     Dosage: 300 MG,QID
     Route: 048
     Dates: start: 20170115
  6. ACICLOVIR [Concomitant]
     Active Substance: ACYCLOVIR
     Dosage: 400 MG,BID
     Route: 065
     Dates: start: 20170711
  7. AMPYRA [Concomitant]
     Active Substance: DALFAMPRIDINE
     Dosage: 10 MG,BID
     Route: 065

REACTIONS (22)
  - Platelet count decreased [Not Recovered/Not Resolved]
  - Hyperlipidaemia [Recovered/Resolved]
  - Mean platelet volume increased [Not Recovered/Not Resolved]
  - Hypertension [Unknown]
  - Oropharyngeal pain [Unknown]
  - White blood cell count increased [Not Recovered/Not Resolved]
  - Monoparesis [Not Recovered/Not Resolved]
  - Neutrophil count decreased [Not Recovered/Not Resolved]
  - Contusion [Recovering/Resolving]
  - Tongue pigmentation [Recovered/Resolved]
  - Haematocrit decreased [Not Recovered/Not Resolved]
  - Leukopenia [Recovered/Resolved]
  - Haemoglobin decreased [Recovered/Resolved]
  - Lymphocyte count decreased [Not Recovered/Not Resolved]
  - Immune thrombocytopenic purpura [Recovered/Resolved]
  - Mean cell haemoglobin decreased [Recovered/Resolved]
  - Glossodynia [Recovered/Resolved]
  - Blood glucose increased [Not Recovered/Not Resolved]
  - Mean cell haemoglobin concentration decreased [Not Recovered/Not Resolved]
  - Memory impairment [Unknown]
  - Neuralgia [Unknown]
  - White blood cell count decreased [Not Recovered/Not Resolved]

NARRATIVE: CASE EVENT DATE: 20160510
